FAERS Safety Report 9581805 (Version 1)
Quarter: 2013Q4

REPORT INFORMATION
  Report Type: Spontaneous
  Country: GB (occurrence: GB)
  Receive Date: 20131002
  Receipt Date: 20131002
  Transmission Date: 20140711
  Serious: Yes (Other)
  Sender: FDA-Public Use
  Company Number: GB-TEVA-434020ISR

PATIENT
  Age: 81 Year
  Sex: Male
  Weight: 69.85 kg

DRUGS (5)
  1. TRAMADOL [Suspect]
     Indication: ARTHRALGIA
     Route: 048
     Dates: start: 20130503, end: 20130504
  2. PREDNISOLONE [Concomitant]
  3. RANITIDINE [Concomitant]
  4. PARACETAMOL [Concomitant]
  5. ISPAGHULA HUSK [Concomitant]

REACTIONS (2)
  - Drug hypersensitivity [Recovered/Resolved]
  - Nausea [Recovered/Resolved]
